FAERS Safety Report 7075755-0 (Version None)
Quarter: 2010Q4

REPORT INFORMATION
  Report Type: 
  Country: None (occurrence: None)
  Receive Date: 20101101
  Receipt Date: 20101025
  Transmission Date: 20110411
  Serious: Yes (Other)
  Sender: FDA-Public Use
  Company Number: FR-BIOGENIDEC-2010BI029706

PATIENT
  Age: 29 Year
  Sex: Female

DRUGS (3)
  1. AVONEX [Suspect]
     Indication: MULTIPLE SCLEROSIS
     Route: 030
     Dates: start: 20071101, end: 20071201
  2. SOLU-MEDROL [Concomitant]
     Route: 040
     Dates: start: 20071201
  3. CORTICOSTEROID [Concomitant]
     Indication: MULTIPLE SCLEROSIS RELAPSE
     Route: 048
     Dates: start: 20071201

REACTIONS (1)
  - DEEP VEIN THROMBOSIS [None]
